FAERS Safety Report 20431799 (Version 17)
Quarter: 2023Q4

REPORT INFORMATION
  Report Type: Spontaneous
  Country: US (occurrence: US)
  Receive Date: 20220204
  Receipt Date: 20231107
  Transmission Date: 20240110
  Serious: Yes (Hospitalization, Disabling, Other)
  Sender: FDA-Public Use
  Company Number: US-PFIZER INC-2015409580

PATIENT
  Age: 88 Year
  Sex: Female
  Weight: 63.5 kg

DRUGS (4)
  1. XELJANZ [Suspect]
     Active Substance: TOFACITINIB CITRATE
     Indication: Rheumatoid arthritis
     Dosage: 5 MG
     Route: 048
     Dates: start: 2013
  2. XELJANZ [Suspect]
     Active Substance: TOFACITINIB CITRATE
     Dosage: 5 MG, 2X/DAY
     Route: 048
  3. XELJANZ [Suspect]
     Active Substance: TOFACITINIB CITRATE
     Dosage: 5 MG, 1X/DAY
     Route: 048
  4. ASPIRIN [Concomitant]
     Active Substance: ASPIRIN
     Dosage: UNK

REACTIONS (16)
  - Lower limb fracture [Recovering/Resolving]
  - Femur fracture [Unknown]
  - Fall [Unknown]
  - Road traffic accident [Unknown]
  - Palpitations [Recovered/Resolved]
  - Hip fracture [Unknown]
  - Neuropathy peripheral [Unknown]
  - Product dose omission issue [Unknown]
  - Pain [Unknown]
  - Throat irritation [Unknown]
  - Cough [Unknown]
  - Body height decreased [Unknown]
  - Blood cholesterol increased [Unknown]
  - Hypoacusis [Unknown]
  - Skin disorder [Unknown]
  - Product prescribing issue [Unknown]

NARRATIVE: CASE EVENT DATE: 20220907
